FAERS Safety Report 5981149-9 (Version None)
Quarter: 2008Q4

REPORT INFORMATION
  Report Type: 
  Country: None (occurrence: None)
  Receive Date: 20081205
  Receipt Date: 20081201
  Transmission Date: 20090506
  Serious: Yes (Death)
  Sender: FDA-Public Use
  Company Number: A0749597A

PATIENT
  Sex: Female
  Weight: 36.4 kg

DRUGS (1)
  1. ADVAIR HFA [Suspect]
     Indication: ASTHMA
     Route: 055
     Dates: start: 20000101

REACTIONS (10)
  - ABDOMINAL PAIN [None]
  - ANOREXIA [None]
  - DEATH [None]
  - GASTROINTESTINAL DISORDER [None]
  - ILL-DEFINED DISORDER [None]
  - PAIN [None]
  - SWOLLEN TONGUE [None]
  - THROAT IRRITATION [None]
  - UNDERWEIGHT [None]
  - WEIGHT DECREASED [None]
